FAERS Safety Report 8390373-X (Version None)
Quarter: 2012Q1

REPORT INFORMATION
  Report Type: 
  Country: None (occurrence: None)
  Receive Date: 20120323
  Receipt Date: 20110309
  Transmission Date: 20120608
  Serious: Yes (Other)
  Sender: FDA-Public Use
  Company Number: 163-21880-11031298

PATIENT
  Age: 66 Year
  Sex: Male
  Weight: 72.6 kg

DRUGS (2)
  1. REVLIMID [Suspect]
     Indication: MULTIPLE MYELOMA
     Dosage: 25 MG, 1 IN 1 D, PO 15 MG, DAILY FOR 21 DAYS ON 7 DAYS OFF, PO
     Route: 048
     Dates: start: 20100301, end: 20100715
  2. REVLIMID [Suspect]
     Indication: MULTIPLE MYELOMA
     Dosage: 25 MG, 1 IN 1 D, PO 15 MG, DAILY FOR 21 DAYS ON 7 DAYS OFF, PO
     Route: 048
     Dates: start: 20101101, end: 20110301

REACTIONS (1)
  - INFLUENZA [None]
